FAERS Safety Report 6258045-5 (Version None)
Quarter: 2009Q3

REPORT INFORMATION
  Report Type: 
  Country: None (occurrence: None)
  Receive Date: 20090702
  Receipt Date: 20090618
  Transmission Date: 20100115
  Serious: Yes (Death, Other)
  Sender: FDA-Public Use
  Company Number: 001099

PATIENT
  Sex: Male

DRUGS (5)
  1. VIMPAT [Suspect]
     Indication: EPILEPSY
     Dosage: (150 MG BID ORAL)
     Route: 048
     Dates: start: 20090224, end: 20090502
  2. LUMINAL /00023201/ [Concomitant]
  3. AXURA [Concomitant]
  4. KEPPRA [Concomitant]
  5. APYDAN /00596701/ [Concomitant]

REACTIONS (1)
  - ATONIC SEIZURES [None]
